FAERS Safety Report 21836141 (Version 2)
Quarter: 2023Q1

REPORT INFORMATION
  Report Type: Report from Study
  Country: US (occurrence: US)
  Receive Date: 20230109
  Receipt Date: 20230315
  Transmission Date: 20230418
  Serious: Yes (Other)
  Sender: FDA-Public Use
  Company Number: US-ABBVIE-4261562

PATIENT
  Age: 81 Year
  Sex: Male

DRUGS (3)
  1. IMBRUVICA [Suspect]
     Active Substance: IBRUTINIB
     Indication: Chronic lymphocytic leukaemia
     Dosage: STRENGTH-420 MILLIGRAM
     Route: 048
     Dates: start: 20230104
  2. IMBRUVICA [Suspect]
     Active Substance: IBRUTINIB
     Indication: Chronic lymphocytic leukaemia
     Dosage: STRENGTH-420 MILLIGRAM
     Route: 048
     Dates: start: 20140801, end: 202212
  3. IMBRUVICA [Suspect]
     Active Substance: IBRUTINIB
     Indication: Chronic lymphocytic leukaemia
     Route: 048

REACTIONS (3)
  - Surgery [Recovered/Resolved]
  - Dental operation [Unknown]
  - Tooth fracture [Recovered/Resolved]

NARRATIVE: CASE EVENT DATE: 20221201
